FAERS Safety Report 11763570 (Version 1)
Quarter: 2015Q4

REPORT INFORMATION
  Report Type: Spontaneous
  Country: US (occurrence: US)
  Receive Date: 20151120
  Receipt Date: 20151120
  Transmission Date: 20160304
  Serious: No
  Sender: FDA-Public Use
  Company Number: US-ELI_LILLY_AND_COMPANY-US201303000497

PATIENT
  Age: 82 Year
  Sex: Female

DRUGS (1)
  1. FORTEO [Suspect]
     Active Substance: TERIPARATIDE
     Indication: OSTEOPOROSIS
     Dosage: UNK, QD
     Dates: start: 201302

REACTIONS (14)
  - Hypersomnia [Unknown]
  - Bone pain [Unknown]
  - Arthralgia [Unknown]
  - Vision blurred [Unknown]
  - Sleep disorder due to a general medical condition [Unknown]
  - Middle insomnia [Unknown]
  - Hearing impaired [Unknown]
  - Fatigue [Not Recovered/Not Resolved]
  - Dizziness [Unknown]
  - Muscle spasms [Unknown]
  - Disturbance in attention [Unknown]
  - Malaise [Unknown]
  - Headache [Not Recovered/Not Resolved]
  - Pain [Not Recovered/Not Resolved]

NARRATIVE: CASE EVENT DATE: 201302
